FAERS Safety Report 7528270-1 (Version None)
Quarter: 2011Q2

REPORT INFORMATION
  Report Type: 
  Country: None (occurrence: None)
  Receive Date: 20110607
  Receipt Date: 20110309
  Transmission Date: 20111010
  Serious: No
  Sender: FDA-Public Use
  Company Number: US-ASTRAZENECA-2011SE13576

PATIENT
  Sex: Male

DRUGS (2)
  1. PRILOSEC [Suspect]
     Route: 048
     Dates: start: 20101201
  2. PRILOSEC [Suspect]
     Route: 048
     Dates: start: 20050501

REACTIONS (1)
  - DRUG EFFECT DECREASED [None]
